FAERS Safety Report 7333004-X (Version None)
Quarter: 2011Q1

REPORT INFORMATION
  Report Type: 
  Country: None (occurrence: None)
  Receive Date: 20110304
  Receipt Date: 20110224
  Transmission Date: 20110831
  Serious: Yes (Other)
  Sender: FDA-Public Use
  Company Number: US-US-EMD SERONO, INC.-230753J10USA

PATIENT
  Sex: Female
  Weight: 90 kg

DRUGS (3)
  1. HIGH DOSE STEROIDS [Suspect]
     Indication: MULTIPLE SCLEROSIS
  2. ACTOS [Concomitant]
     Indication: GLUCOSE TOLERANCE IMPAIRED
  3. REBIF [Suspect]
     Indication: MULTIPLE SCLEROSIS
     Route: 058
     Dates: start: 20021210, end: 20100120

REACTIONS (4)
  - OSTEOPOROSIS [None]
  - HEADACHE [None]
  - MUSCULAR WEAKNESS [None]
  - INJECTION SITE REACTION [None]
